FAERS Safety Report 18549075 (Version 1)
Quarter: 2020Q4

REPORT INFORMATION
  Report Type: Spontaneous
  Country: CN (occurrence: CN)
  Receive Date: 20201126
  Receipt Date: 20201126
  Transmission Date: 20210114
  Serious: Yes (Hospitalization, Other)
  Sender: FDA-Public Use
  Company Number: CN-LUPIN PHARMACEUTICALS INC.-2020-09291

PATIENT
  Age: 28 Year
  Sex: Female
  Weight: 50 kg

DRUGS (3)
  1. POLYMYXIN B. [Suspect]
     Active Substance: POLYMYXIN B
     Indication: ANTIBIOTIC THERAPY
     Dosage: 50 MILLIGRAM, BID (ADMINISTERED THROUGH IV DRIP)
     Route: 042
     Dates: start: 20190503, end: 20190512
  2. SUFENTANIL CITRATE. [Suspect]
     Active Substance: SUFENTANIL CITRATE
     Indication: ANAESTHESIA
     Dosage: 300 MILLIGRAM, QD (ADMINISTERED THROUGH IV PUMP)
     Route: 042
     Dates: start: 20190501, end: 20190505
  3. METHYLPREDNISOLONE. [Suspect]
     Active Substance: METHYLPREDNISOLONE
     Indication: DRUG THERAPY
     Dosage: 80 MILLIGRAM, QD (ADMINISTERED THROUGH IV DRIP)
     Route: 042
     Dates: start: 20190502, end: 20190505

REACTIONS (4)
  - Neurotoxicity [Recovered/Resolved]
  - Renal impairment [Recovered/Resolved]
  - Muscle strength abnormal [Recovered/Resolved]
  - Cognitive disorder [Recovered/Resolved]

NARRATIVE: CASE EVENT DATE: 201905
